FAERS Safety Report 9380577 (Version 1)
Quarter: 2013Q3

REPORT INFORMATION
  Report Type: Spontaneous
  Country: US (occurrence: US)
  Receive Date: 20130702
  Receipt Date: 20130702
  Transmission Date: 20140515
  Serious: No
  Sender: FDA-Public Use
  Company Number: US-PFIZER INC-2013191828

PATIENT
  Sex: Male

DRUGS (1)
  1. SUTENT [Suspect]
     Indication: METASTATIC NEOPLASM
     Dosage: 50 MG, UNK
     Route: 048

REACTIONS (2)
  - Inappropriate schedule of drug administration [Unknown]
  - Palmar-plantar erythrodysaesthesia syndrome [Unknown]
